FAERS Safety Report 5797825-7 (Version None)
Quarter: 2008Q3

REPORT INFORMATION
  Report Type: 
  Country: None (occurrence: None)
  Receive Date: 20080702
  Receipt Date: 20080620
  Transmission Date: 20090109
  Serious: Yes (Other)
  Sender: FDA-Public Use
  Company Number: CA-WYE-H04184208

PATIENT
  Sex: Female
  Weight: 124 kg

DRUGS (19)
  1. PANTOPRAZOLE SODIUM [Suspect]
     Indication: GASTROOESOPHAGEAL REFLUX DISEASE
     Route: 048
     Dates: start: 20070911, end: 20071231
  2. PANTOPRAZOLE SODIUM [Suspect]
     Route: 048
     Dates: start: 20080201, end: 20080510
  3. VIOXX [Concomitant]
     Dosage: UNKNOWN
     Route: 048
  4. IBUROFEN [Concomitant]
     Dates: start: 20080101
  5. HALCION [Concomitant]
     Dosage: UNSPECIFIED, PRN
     Route: 048
  6. CALCIUM PHOSPHATE/CALCIUM SODIUM LACTATE/ERGOCALCIFEROL [Concomitant]
     Indication: OSTEOPOROSIS
     Dosage: UNKNOWN
     Dates: start: 20040101
  7. DICETEL [Concomitant]
     Route: 048
     Dates: start: 20050628
  8. MIACALCIN [Concomitant]
     Indication: OSTEOPOROSIS
     Dosage: UNKNOWN
     Dates: start: 20030328
  9. ALBUTEROL [Concomitant]
     Dosage: UNKNOWN, PRN
     Dates: start: 20040101
  10. ACTONEL [Concomitant]
     Indication: OSTEOPENIA
     Route: 048
     Dates: start: 20071101
  11. NICOTINAMIDE/PYRIDOXINE HYDROCHLORIDE/RIBOFLAVIN/THIAMINE HYDROCHLORID [Concomitant]
     Dosage: UNKNOWN
     Route: 048
  12. FISH OIL [Concomitant]
  13. VITAMIN D3 [Concomitant]
     Route: 048
  14. COLLAGEN [Concomitant]
  15. ZINC PRODUCTS [Concomitant]
  16. KELP [Concomitant]
  17. PANCRELIPASE [Concomitant]
     Route: 048
  18. SLIPPERY ELM [Concomitant]
     Route: 048
  19. SYMBICORT [Concomitant]
     Dosage: 200 MCG , FREQUENCY UNSPECIFIED
     Dates: start: 20080111

REACTIONS (5)
  - ARTHRALGIA [None]
  - MOBILITY DECREASED [None]
  - MYALGIA [None]
  - SENSORY DISTURBANCE [None]
  - TENDONITIS [None]
